FAERS Safety Report 6841241-3 (Version None)
Quarter: 2010Q3

REPORT INFORMATION
  Report Type: 
  Country: None (occurrence: None)
  Receive Date: 20100714
  Receipt Date: 20070627
  Transmission Date: 20110219
  Serious: No
  Sender: FDA-Public Use
  Company Number: US-PFIZER INC-2007054305

PATIENT
  Sex: Female
  Weight: 60 kg

DRUGS (5)
  1. CHANTIX [Suspect]
     Indication: SMOKING CESSATION THERAPY
     Dates: start: 20070601, end: 20070626
  2. CARDIOVASCULAR SYSTEM DRUGS [Concomitant]
     Indication: BLOOD PRESSURE
  3. IBUPROFEN [Concomitant]
  4. ALKA-SELTZER [Concomitant]
  5. TUMS [Concomitant]

REACTIONS (2)
  - ABDOMINAL DISTENSION [None]
  - NAUSEA [None]
